FAERS Safety Report 22858461 (Version 2)
Quarter: 2023Q4

REPORT INFORMATION
  Report Type: Spontaneous
  Country: US (occurrence: US)
  Receive Date: 20230824
  Receipt Date: 20231023
  Transmission Date: 20240110
  Serious: Yes (Other)
  Sender: FDA-Public Use
  Company Number: US-ABBVIE-5377564

PATIENT
  Sex: Female
  Weight: 57 kg

DRUGS (2)
  1. BOTOX [Suspect]
     Active Substance: ONABOTULINUMTOXINA
     Indication: Product used for unknown indication
     Dosage: TIME INTERVAL: AS NECESSARY: FREQUENCY TEXT: SINGLE
     Route: 030
     Dates: start: 20230728, end: 20230728
  2. BOTOX [Suspect]
     Active Substance: ONABOTULINUMTOXINA
     Indication: Product used for unknown indication
     Dosage: TIME INTERVAL: AS NECESSARY: FREQUENCY TEXT: SINGLE
     Route: 030
     Dates: start: 20230803, end: 20230803

REACTIONS (13)
  - Papule [Recovered/Resolved]
  - Headache [Recovered/Resolved]
  - Injection site swelling [Recovered/Resolved]
  - Facial pain [Unknown]
  - Injection site warmth [Unknown]
  - Caffeine allergy [Recovered/Resolved]
  - Injection site pain [Unknown]
  - Drug hypersensitivity [Unknown]
  - Flushing [Recovered/Resolved]
  - Injection site erythema [Unknown]
  - Pruritus [Recovered/Resolved]
  - Migraine [Unknown]
  - Face oedema [Recovered/Resolved]

NARRATIVE: CASE EVENT DATE: 20230101
